FAERS Safety Report 8088326-4 (Version None)
Quarter: 2012Q1

REPORT INFORMATION
  Report Type: 
  Country: None (occurrence: None)
  Receive Date: 20120128
  Receipt Date: 20110606
  Transmission Date: 20120608
  Serious: No
  Sender: FDA-Public Use
  Company Number: US-ABBOTT-11P-163-0730637-00

PATIENT
  Age: 51 Year
  Sex: Female

DRUGS (22)
  1. HYOSCYAMINE SULFATE [Concomitant]
     Indication: GASTROINTESTINAL PAIN
  2. METAMUCIL-2 [Concomitant]
     Indication: DIARRHOEA
  3. IBUPROFEN [Concomitant]
     Indication: DYSMENORRHOEA
  4. MERCAPTOPURINE [Concomitant]
     Indication: CROHN'S DISEASE
  5. PRILOSEC [Concomitant]
     Indication: GASTROOESOPHAGEAL REFLUX DISEASE
  6. PERCOCET [Concomitant]
     Indication: PAIN
     Dosage: 5-325 MG
  7. PHENERGAN [Concomitant]
     Indication: NAUSEA
  8. ASCORBIC ACID [Concomitant]
     Indication: PRODUCT USED FOR UNKNOWN INDICATION
  9. IBUPROFEN [Concomitant]
     Indication: HEADACHE
  10. XANAX [Concomitant]
     Indication: ANXIETY
  11. VITAMIN B-12 [Concomitant]
     Indication: PRODUCT USED FOR UNKNOWN INDICATION
  12. FISH OIL [Concomitant]
     Indication: PRODUCT USED FOR UNKNOWN INDICATION
  13. ICAPS MULTIVITAMIN FORMULA [Concomitant]
     Indication: PRODUCT USED FOR UNKNOWN INDICATION
  14. ACETAMINOPHEN [Concomitant]
     Indication: HEADACHE
  15. ACETAMINOPHEN [Concomitant]
     Indication: DYSMENORRHOEA
  16. PROZAC [Concomitant]
     Indication: DEPRESSION
  17. TOPROL-XL [Concomitant]
     Indication: HYPERTENSION
     Dosage: 1/2 TABLET DAILY
  18. RESTASIS [Concomitant]
     Indication: DRY EYE
     Dosage: 1 DROP IN EACH EYE BID
  19. CALCIUM WITH VITAMIN D [Concomitant]
     Indication: PRODUCT USED FOR UNKNOWN INDICATION
     Dosage: 600 MG/400 IU
  20. HUMIRA [Suspect]
     Indication: CROHN'S DISEASE
     Dosage: LOADING DOSE
     Dates: start: 20110526
  21. ENTOCORT EC [Concomitant]
     Indication: CROHN'S DISEASE
  22. VITAMIN A [Concomitant]
     Indication: PRODUCT USED FOR UNKNOWN INDICATION

REACTIONS (2)
  - INJECTION SITE PAIN [None]
  - PARAESTHESIA [None]
